FAERS Safety Report 24757476 (Version 1)
Quarter: 2024Q4

REPORT INFORMATION
  Report Type: Report from Study
  Country: US (occurrence: US)
  Receive Date: 20241220
  Receipt Date: 20241220
  Transmission Date: 20250115
  Serious: Yes (Other)
  Sender: GLAXOSMITHKLINE
  Company Number: US-GSKCCFUS-Case-02173811_AE-119695

PATIENT

DRUGS (1)
  1. MEPOLIZUMAB [Suspect]
     Active Substance: MEPOLIZUMAB
     Indication: Product used for unknown indication
     Dosage: 100 MG
     Route: 058

REACTIONS (2)
  - Spinal operation [Unknown]
  - Incision site impaired healing [Not Recovered/Not Resolved]
